FAERS Safety Report 5033791-X (Version None)
Quarter: 2006Q2

REPORT INFORMATION
  Report Type: 
  Country: None (occurrence: None)
  Receive Date: 20060623
  Receipt Date: 20060621
  Transmission Date: 20061013
  Serious: Yes (Other)
  Sender: FDA-Public Use
  Company Number: BR-JNJFOC-20060601128

PATIENT
  Age: 87 Year
  Sex: Female
  Weight: 50 kg

DRUGS (2)
  1. REMINYL ER [Suspect]
     Indication: AMNESIA
     Route: 048
  2. GALANTAMINE HYDROBROMIDE [Concomitant]
     Indication: AMNESIA

REACTIONS (8)
  - DYSURIA [None]
  - ERUCTATION [None]
  - HYPERHIDROSIS [None]
  - HYPERTENSION [None]
  - NAUSEA [None]
  - ORAL DISCOMFORT [None]
  - PALLOR [None]
  - VOMITING [None]
